FAERS Safety Report 10266209 (Version 1)
Quarter: 2014Q2

REPORT INFORMATION
  Report Type: Spontaneous
  Country: ZA (occurrence: ZA)
  Receive Date: 20140627
  Receipt Date: 20140627
  Transmission Date: 20141212
  Serious: Yes (Hospitalization)
  Sender: FDA-Public Use
  Company Number: US-ASTRAZENECA-2014SE46072

PATIENT
  Age: 117 Day
  Sex: Male
  Weight: 3.6 kg

DRUGS (2)
  1. SYNAGIS [Suspect]
     Indication: PRODUCT USED FOR UNKNOWN INDICATION
     Route: 030
     Dates: start: 20140307, end: 20140307
  2. SYNAGIS [Suspect]
     Indication: PRODUCT USED FOR UNKNOWN INDICATION
     Route: 030
     Dates: start: 20140602

REACTIONS (3)
  - Bronchiolitis [Recovering/Resolving]
  - Bronchiolitis [Unknown]
  - Malaise [Unknown]
